FAERS Safety Report 15705301 (Version 1)
Quarter: 2018Q4

REPORT INFORMATION
  Report Type: Spontaneous
  Country: US (occurrence: US)
  Receive Date: 20181210
  Receipt Date: 20181210
  Transmission Date: 20190205
  Serious: Yes (Other)
  Sender: FDA-Public Use
  Company Number: None

PATIENT
  Age: 49 Year
  Sex: Male
  Weight: 123.75 kg

DRUGS (8)
  1. EPZICOM [Concomitant]
     Active Substance: ABACAVIR SULFATE\LAMIVUDINE
  2. TIVICAY [Concomitant]
     Active Substance: DOLUTEGRAVIR SODIUM
  3. TERBINAFINE 250MG [Suspect]
     Active Substance: TERBINAFINE
     Indication: ONYCHOMYCOSIS
     Dosage: ?          QUANTITY:84 TABLET(S);?
     Route: 048
     Dates: start: 20181117, end: 20181207
  4. FENOFIBRATE. [Concomitant]
     Active Substance: FENOFIBRATE
  5. ALPRAZOLAM. [Concomitant]
     Active Substance: ALPRAZOLAM
  6. LOSARTAN. [Concomitant]
     Active Substance: LOSARTAN
  7. VENLOFAXINE [Concomitant]
  8. FOLIC ACID. [Concomitant]
     Active Substance: FOLIC ACID

REACTIONS (4)
  - Product label issue [None]
  - Dizziness [None]
  - Vomiting [None]
  - Nausea [None]

NARRATIVE: CASE EVENT DATE: 20181205
